FAERS Safety Report 7403048-8 (Version None)
Quarter: 2011Q2

REPORT INFORMATION
  Report Type: 
  Country: None (occurrence: None)
  Receive Date: 20110408
  Receipt Date: 20110325
  Transmission Date: 20111010
  Serious: Yes (Hospitalization)
  Sender: FDA-Public Use
  Company Number: AU-CELGENEUS-008-21880-10121434

PATIENT
  Sex: Male
  Weight: 143.4 kg

DRUGS (10)
  1. REVLIMID [Suspect]
     Dosage: 25 MILLIGRAM
     Route: 048
     Dates: start: 20100531
  2. RESPIRIN [Concomitant]
     Route: 065
     Dates: start: 20090909
  3. GLYCEROL 2.6% [Concomitant]
     Indication: PSORIASIS
     Route: 061
     Dates: start: 20100622
  4. SALICYLIC ACID IN VASELINE CETOMACROGOL CREAM [Concomitant]
     Indication: PSORIASIS
     Route: 061
     Dates: start: 20100622
  5. REVLIMID [Suspect]
     Dosage: 15 MILLIGRAM
     Route: 048
     Dates: start: 20101220
  6. NEXIUM [Concomitant]
     Indication: PROPHYLAXIS
     Dosage: 20 MILLIGRAM
     Route: 048
     Dates: start: 20090909
  7. HYDROCORTISONE [Concomitant]
     Indication: PSORIASIS
     Route: 061
     Dates: start: 20100622
  8. REVLIMID [Suspect]
     Dosage: 25 MILLIGRAM
     Route: 048
     Dates: end: 20101206
  9. CLEXANE [Concomitant]
     Route: 058
     Dates: start: 20090909
  10. REVLIMID [Suspect]
     Indication: MULTIPLE MYELOMA
     Dosage: 25 MILLIGRAM
     Route: 048
     Dates: start: 20090910

REACTIONS (1)
  - PSORIASIS [None]
